FAERS Safety Report 8809135 (Version 1)
Quarter: 2012Q4

REPORT INFORMATION
  Report Type: Spontaneous
  Country: US (occurrence: None)
  Receive Date: 20120921
  Receipt Date: 20120921
  Transmission Date: 20130627
  Serious: Yes (Other)
  Sender: FDA-Public Use
  Company Number: None

PATIENT
  Age: 63 Year
  Sex: Female
  Weight: 51.71 kg

DRUGS (4)
  1. ATELVIA [Suspect]
     Indication: OSTEOPENIA
     Dosage: 1 TAB WEEKLY PO
     Route: 048
     Dates: start: 20120912, end: 20120919
  2. ATELVIA [Suspect]
     Indication: OSTEOPOROSIS PROPHYLAXIS
     Dosage: 1 TAB WEEKLY PO
     Route: 048
     Dates: start: 20120912, end: 20120919
  3. ATELVIA [Suspect]
     Indication: FEMUR FRACTURE
     Dosage: 1 TAB WEEKLY PO
     Route: 048
     Dates: start: 20120912, end: 20120919
  4. ATELVIA [Suspect]
     Indication: PROPHYLAXIS
     Dosage: 1 TAB WEEKLY PO
     Route: 048
     Dates: start: 20120912, end: 20120919

REACTIONS (6)
  - Headache [None]
  - Visual impairment [None]
  - Pain in extremity [None]
  - Pain in extremity [None]
  - Sleep disorder due to general medical condition, insomnia type [None]
  - Muscle spasms [None]
